FAERS Safety Report 14123948 (Version 3)
Quarter: 2018Q1

REPORT INFORMATION
  Report Type: Spontaneous
  Country: GB (occurrence: GB)
  Receive Date: 20171025
  Receipt Date: 20180226
  Transmission Date: 20180508
  Serious: Yes (Life-Threatening, Hospitalization, Disabling)
  Sender: FDA-Public Use
  Company Number: GB-TEVA-220163ISR

PATIENT
  Age: 63 Year
  Sex: Male
  Weight: 80 kg

DRUGS (41)
  1. OMEPRAZOLE. [Suspect]
     Active Substance: OMEPRAZOLE
     Route: 042
     Dates: start: 20050827
  2. OMEPRAZOLE. [Suspect]
     Active Substance: OMEPRAZOLE
     Route: 042
     Dates: start: 20050630
  3. PANTOZOL [Suspect]
     Active Substance: PANTOPRAZOLE SODIUM
     Indication: GASTROOESOPHAGEAL REFLUX DISEASE
     Route: 065
  4. OMEPRAZOLE. [Suspect]
     Active Substance: OMEPRAZOLE
     Route: 042
     Dates: start: 20050819
  5. OMEPRAZOLE. [Suspect]
     Active Substance: OMEPRAZOLE
     Route: 042
     Dates: start: 20060609, end: 20060617
  6. RABEPRAZOLE SODIUM. [Suspect]
     Active Substance: RABEPRAZOLE SODIUM
     Indication: PRODUCT USED FOR UNKNOWN INDICATION
     Route: 048
  7. LOSEC [Suspect]
     Active Substance: OMEPRAZOLE
     Dates: start: 2006, end: 200605
  8. OMEPRAZOLE. [Suspect]
     Active Substance: OMEPRAZOLE
     Route: 042
     Dates: start: 20060209
  9. OMEPRAZOLE. [Suspect]
     Active Substance: OMEPRAZOLE
     Route: 042
     Dates: start: 20050910
  10. OMEPRAZOLE. [Suspect]
     Active Substance: OMEPRAZOLE
     Route: 042
     Dates: start: 20050714
  11. OMEPRAZOLE. [Suspect]
     Active Substance: OMEPRAZOLE
     Route: 042
     Dates: start: 20051018
  12. OMEPRAZOLE. [Suspect]
     Active Substance: OMEPRAZOLE
     Route: 042
     Dates: start: 20060328
  13. OMEPRAZOLE. [Suspect]
     Active Substance: OMEPRAZOLE
     Route: 042
     Dates: start: 20051129
  14. OMEPRAZOLE. [Suspect]
     Active Substance: OMEPRAZOLE
     Route: 042
     Dates: start: 20050730
  15. OMEPRAZOLE. [Suspect]
     Active Substance: OMEPRAZOLE
     Route: 042
     Dates: start: 20060527
  16. PANTOPRAZOLE [Suspect]
     Active Substance: PANTOPRAZOLE
     Indication: GASTROOESOPHAGEAL REFLUX DISEASE
     Route: 065
  17. LOSEC [Suspect]
     Active Substance: OMEPRAZOLE
     Indication: GASTROOESOPHAGEAL REFLUX DISEASE
     Route: 048
     Dates: end: 200606
  18. OMEPRAZOLE. [Suspect]
     Active Substance: OMEPRAZOLE
     Route: 042
     Dates: start: 20051009
  19. OMEPRAZOLE. [Suspect]
     Active Substance: OMEPRAZOLE
     Route: 042
     Dates: start: 20060223
  20. OMEPRAZOLE. [Suspect]
     Active Substance: OMEPRAZOLE
     Indication: PRODUCT USED FOR UNKNOWN INDICATION
     Route: 042
     Dates: start: 20060501
  21. OMEPRAZOLE. [Suspect]
     Active Substance: OMEPRAZOLE
     Route: 042
     Dates: start: 20050505, end: 20060527
  22. OMEPRAZOLE. [Suspect]
     Active Substance: OMEPRAZOLE
     Route: 042
     Dates: start: 20060509
  23. OMEPRAZOLE. [Suspect]
     Active Substance: OMEPRAZOLE
     Route: 042
     Dates: start: 20051115
  24. OMEPRAZOLE. [Suspect]
     Active Substance: OMEPRAZOLE
     Route: 042
     Dates: start: 20051228
  25. OMEPRAZOLE. [Suspect]
     Active Substance: OMEPRAZOLE
     Route: 042
     Dates: start: 20060411
  26. OMEPRAZOLE. [Suspect]
     Active Substance: OMEPRAZOLE
     Route: 042
     Dates: start: 20050811
  27. OMEPRAZOLE. [Suspect]
     Active Substance: OMEPRAZOLE
     Route: 042
     Dates: start: 20060113
  28. OMEPRAZOLE. [Suspect]
     Active Substance: OMEPRAZOLE
     Route: 042
     Dates: start: 20060313
  29. OMEPRAZOLE. [Suspect]
     Active Substance: OMEPRAZOLE
     Route: 042
     Dates: start: 20050618
  30. OMEPRAZOLE. [Suspect]
     Active Substance: OMEPRAZOLE
     Route: 042
     Dates: start: 20060527
  31. OMEPRAZOLE. [Suspect]
     Active Substance: OMEPRAZOLE
     Route: 042
     Dates: start: 20050601
  32. OMEPRAZOLE. [Suspect]
     Active Substance: OMEPRAZOLE
     Route: 042
     Dates: start: 20051213
  33. OMEPRAZOLE. [Suspect]
     Active Substance: OMEPRAZOLE
     Route: 042
     Dates: start: 20050517, end: 20050527
  34. OMEPRAZOLE. [Suspect]
     Active Substance: OMEPRAZOLE
     Route: 042
     Dates: start: 20060617
  35. OMEPRAZOLE. [Suspect]
     Active Substance: OMEPRAZOLE
     Route: 042
     Dates: start: 20050920
  36. ACIPHEX [Suspect]
     Active Substance: RABEPRAZOLE SODIUM
     Indication: PRODUCT USED FOR UNKNOWN INDICATION
     Route: 065
  37. OMEPRAZOLE. [Suspect]
     Active Substance: OMEPRAZOLE
     Route: 042
     Dates: start: 20051105
  38. OMEPRAZOLE. [Suspect]
     Active Substance: OMEPRAZOLE
     Route: 048
     Dates: end: 2002
  39. OMEPRAZOLE. [Suspect]
     Active Substance: OMEPRAZOLE
     Route: 042
     Dates: start: 20050505, end: 20050527
  40. LANSOPRAZOLE. [Suspect]
     Active Substance: LANSOPRAZOLE
     Indication: PRODUCT USED FOR UNKNOWN INDICATION
     Route: 048
     Dates: start: 20060725, end: 20060808
  41. LOSEC [Suspect]
     Active Substance: OMEPRAZOLE
     Route: 048
     Dates: end: 2002

REACTIONS (5)
  - Hypoparathyroidism secondary [Unknown]
  - Tetanus [Unknown]
  - Hypocalcaemia [Recovered/Resolved]
  - Hypomagnesaemia [Recovered/Resolved]
  - Tetany [Unknown]

NARRATIVE: CASE EVENT DATE: 2003
